FAERS Safety Report 6090993-1 (Version None)
Quarter: 2009Q1

REPORT INFORMATION
  Report Type: 
  Country: None (occurrence: None)
  Receive Date: 20090218
  Receipt Date: 20090218
  Transmission Date: 20090719
  Serious: Yes (Other)
  Sender: FDA-Public Use
  Company Number: None

PATIENT
  Age: 30 Year
  Sex: Female
  Weight: 43.0917 kg

DRUGS (3)
  1. SEASONIQUE [Suspect]
     Indication: CYST
     Dosage: 1X A DAY PO
     Route: 048
     Dates: start: 20090201, end: 20090208
  2. SEASONIQUE [Suspect]
     Indication: DYSMENORRHOEA
     Dosage: 1X A DAY PO
     Route: 048
     Dates: start: 20090201, end: 20090208
  3. SEASONIQUE [Suspect]
     Indication: ORAL CONTRACEPTION
     Dosage: 1X A DAY PO
     Route: 048
     Dates: start: 20090201, end: 20090208

REACTIONS (6)
  - ANGER [None]
  - HYPOAESTHESIA [None]
  - HYPOAESTHESIA FACIAL [None]
  - IMPAIRED DRIVING ABILITY [None]
  - MIGRAINE [None]
  - MOOD SWINGS [None]
